FAERS Safety Report 5597058-3 (Version None)
Quarter: 2007Q4

REPORT INFORMATION
  Report Type: 
  Country: None (occurrence: None)
  Receive Date: 20071221
  Receipt Date: 20071120
  Transmission Date: 20080405
  Serious: No
  Sender: FDA-Public Use
  Company Number: SPV1-2007-05016

PATIENT
  Age: 7 Year
  Sex: Male

DRUGS (3)
  1. VYVANSE [Suspect]
     Dosage: 30 MG, OTHER (1 1/2 CAPS DAILY) IN WATER, ORAL
     Route: 048
     Dates: start: 20071030
  2. INSECTICIDES AND REPELLENT() [Suspect]
     Dates: start: 20071119, end: 20071119
  3. BENADRYL [Suspect]
     Dates: start: 20071119

REACTIONS (6)
  - ABNORMAL BEHAVIOUR [None]
  - DYSKINESIA [None]
  - FEELING ABNORMAL [None]
  - PRURITUS [None]
  - VISUAL DISTURBANCE [None]
  - WRONG TECHNIQUE IN DRUG USAGE PROCESS [None]
